FAERS Safety Report 8356291-8 (Version None)
Quarter: 2012Q2

REPORT INFORMATION
  Report Type: 
  Country: None (occurrence: None)
  Receive Date: 20120514
  Receipt Date: 20120508
  Transmission Date: 20120825
  Serious: Yes (Other)
  Sender: FDA-Public Use
  Company Number: US-PFIZER INC-2012067395

PATIENT
  Age: 96 Year
  Sex: Female

DRUGS (3)
  1. LIPITOR [Concomitant]
     Indication: HYPERLIPIDAEMIA
     Dosage: 20 MG, 3X/DAY
     Route: 048
  2. ASPIRIN [Concomitant]
     Dosage: 81 MG, 3X/DAY
     Route: 048
  3. NEURONTIN [Suspect]
     Indication: NEUROPATHY PERIPHERAL
     Dosage: 100 MG, UNK
     Route: 048
     Dates: start: 20120301, end: 20120101

REACTIONS (2)
  - MONOPLEGIA [None]
  - OEDEMA PERIPHERAL [None]
